FAERS Safety Report 5393764-4 (Version None)
Quarter: 2007Q3

REPORT INFORMATION
  Report Type: 
  Country: None (occurrence: None)
  Receive Date: 20070723
  Receipt Date: 20070712
  Transmission Date: 20080115
  Serious: Yes (Other)
  Sender: FDA-Public Use
  Company Number: US-JNJFOC-20070703233

PATIENT
  Sex: Male
  Weight: 113.85 kg

DRUGS (11)
  1. DURAGESIC-100 [Suspect]
     Indication: PAIN
     Route: 062
  2. TOPROL-XL [Concomitant]
     Indication: CARDIAC DISORDER
     Dosage: 3 X 50 MG
     Route: 048
  3. CLARINEX [Concomitant]
     Indication: MULTIPLE ALLERGIES
     Route: 048
  4. NITROQUICK [Concomitant]
     Indication: ANGINA PECTORIS
     Dosage: AS NEEDED
     Route: 060
  5. LIPITOR [Concomitant]
     Indication: BLOOD CHOLESTEROL INCREASED
     Route: 048
  6. DIOVAN [Concomitant]
     Indication: CARDIAC DISORDER
     Dosage: 1 AT BEDTIME
     Route: 048
  7. FLEXERIL [Concomitant]
     Indication: MUSCLE SPASMS
     Route: 048
  8. ASPIRIN [Concomitant]
     Indication: CARDIAC DISORDER
     Route: 048
  9. PERI-COLACE [Concomitant]
     Indication: CONSTIPATION
     Route: 048
  10. NOVOLOG [Concomitant]
     Dosage: IN PM
     Route: 058
  11. NOVOLOG [Concomitant]
     Indication: DIABETES MELLITUS
     Dosage: IN AM
     Route: 058

REACTIONS (10)
  - BLOOD CHOLESTEROL INCREASED [None]
  - DEPRESSION [None]
  - DRUG ADMINISTERED AT INAPPROPRIATE SITE [None]
  - DYSPEPSIA [None]
  - EXPIRED DRUG ADMINISTERED [None]
  - INAPPROPRIATE SCHEDULE OF DRUG ADMINISTRATION [None]
  - INSOMNIA [None]
  - PAIN [None]
  - SEASONAL ALLERGY [None]
  - WRONG TECHNIQUE IN DRUG USAGE PROCESS [None]
